FAERS Safety Report 18318507 (Version 1)
Quarter: 2020Q3

REPORT INFORMATION
  Report Type: Spontaneous
  Country: US (occurrence: US)
  Receive Date: 20200925
  Receipt Date: 20200925
  Transmission Date: 20201103
  Serious: Yes (Hospitalization)
  Sender: FDA-Public Use
  Company Number: None

PATIENT
  Age: 31 Year
  Sex: Male

DRUGS (14)
  1. VSL#3 [Concomitant]
     Active Substance: PROBIOTICS NOS
  2. HYDROXYZ HCL [Concomitant]
     Active Substance: HYDROXYZINE HYDROCHLORIDE
  3. FLUOXETINE [Concomitant]
     Active Substance: FLUOXETINE HYDROCHLORIDE
  4. VENLAFAXINE [Concomitant]
     Active Substance: VENLAFAXINE HYDROCHLORIDE
  5. DEXTROAMPHET SACCHARAT, AMPHET ASPARTATE, DEXTROAMPHET SULFATE AND AMPHET SULFAT [Concomitant]
     Active Substance: AMPHETAMINE ASPARTATE\AMPHETAMINE SULFATE\DEXTROAMPHETAMINE SACCHARATE\DEXTROAMPHETAMINE SULFATE
  6. HUMIRA [Suspect]
     Active Substance: ADALIMUMAB
  7. ANUCORT?HC [Concomitant]
     Active Substance: HYDROCORTISONE ACETATE
  8. ARIPIPRAZOLE. [Concomitant]
     Active Substance: ARIPIPRAZOLE
  9. AZATHIOPRINE. [Concomitant]
     Active Substance: AZATHIOPRINE
  10. METRONIDAZOL [Concomitant]
     Active Substance: METRONIDAZOLE
  11. TRAZOSONE [Concomitant]
  12. CIPROFLOXACN [Concomitant]
     Active Substance: CIPROFLOXACIN
  13. LORZEPAM [Concomitant]
     Active Substance: LORAZEPAM
  14. TAMSULOSIN [Concomitant]
     Active Substance: TAMSULOSIN

REACTIONS (1)
  - Constipation [None]

NARRATIVE: CASE EVENT DATE: 20200921
